FAERS Safety Report 4337487-9 (Version None)
Quarter: 2004Q2

REPORT INFORMATION
  Report Type: 
  Country: None (occurrence: None)
  Receive Date: 20040412
  Receipt Date: 20040412
  Transmission Date: 20050107
  Serious: Yes (Life-Threatening, Hospitalization)
  Sender: FDA-Public Use
  Company Number: None

PATIENT
  Sex: Male
  Weight: 104.3273 kg

DRUGS (8)
  1. WARFARIN SODIUM [Suspect]
     Indication: PROTEIN C DECREASED
     Dosage: 7 MG DAILY ORAL
     Route: 048
     Dates: start: 19990101, end: 20040410
  2. WARFARIN SODIUM [Suspect]
     Indication: PROTEIN S DECREASED
     Dosage: 7 MG DAILY ORAL
     Route: 048
     Dates: start: 19990101, end: 20040410
  3. HYDROCHLOROTHIAZIDE [Concomitant]
  4. LISINOPRIL [Concomitant]
  5. ACETAMINOPHEN [Concomitant]
  6. SALSALATE [Concomitant]
  7. FLUNISOLIDE NASAL SPRAY [Concomitant]
  8. CHLORPHENIRAMINE MALEATE [Concomitant]

REACTIONS (1)
  - SUBDURAL HAEMATOMA [None]
